FAERS Safety Report 15315350 (Version 1)
Quarter: 2018Q3

REPORT INFORMATION
  Report Type: Spontaneous
  Country: US (occurrence: US)
  Receive Date: 20180815
  Receipt Date: 20180815
  Transmission Date: 20181010
  Serious: Yes (Hospitalization)
  Sender: FDA-Public Use
  Company Number: None

PATIENT
  Age: 62 Year
  Sex: Male

DRUGS (7)
  1. NAPROXEN. [Concomitant]
     Active Substance: NAPROXEN
     Dates: start: 20180314
  2. XELJANZ [Suspect]
     Active Substance: TOFACITINIB CITRATE
     Route: 048
     Dates: start: 20180316, end: 20180716
  3. METHOTREXATE. [Suspect]
     Active Substance: METHOTREXATE
     Dates: start: 20180316, end: 20180716
  4. PREDNISONE. [Concomitant]
     Active Substance: PREDNISONE
     Dates: start: 20180314
  5. OMEPRAZOLE. [Concomitant]
     Active Substance: OMEPRAZOLE
     Dates: start: 20180314
  6. VITAMIN D [Concomitant]
     Active Substance: CHOLECALCIFEROL
     Dates: start: 20180314
  7. FOLIC ACID. [Concomitant]
     Active Substance: FOLIC ACID
     Dates: start: 20180314

REACTIONS (3)
  - Liver function test increased [None]
  - Condition aggravated [None]
  - Pneumonia [None]

NARRATIVE: CASE EVENT DATE: 20180720
